FAERS Safety Report 13954676 (Version 1)
Quarter: 2017Q3

REPORT INFORMATION
  Report Type: Spontaneous
  Country: US (occurrence: US)
  Receive Date: 20170910
  Receipt Date: 20170910
  Transmission Date: 20171128
  Serious: Yes (Hospitalization)
  Sender: FDA-Public Use
  Company Number: None

PATIENT
  Age: 88 Year
  Sex: Male
  Weight: 88.5 kg

DRUGS (11)
  1. PRAVASTATIN. [Concomitant]
     Active Substance: PRAVASTATIN
  2. FUROSEMIDE. [Concomitant]
     Active Substance: FUROSEMIDE
  3. HYDROCHLOROTHIAZIDE. [Concomitant]
     Active Substance: HYDROCHLOROTHIAZIDE
  4. MIRTAZAPINE. [Suspect]
     Active Substance: MIRTAZAPINE
     Indication: DEPRESSION
     Route: 048
  5. DUTASETERIDE [Concomitant]
  6. WARFARIN [Concomitant]
     Active Substance: WARFARIN
  7. GLYBURIDE. [Concomitant]
     Active Substance: GLYBURIDE
  8. METOPROLOL. [Concomitant]
     Active Substance: METOPROLOL
  9. TRAZODONE [Concomitant]
     Active Substance: TRAZODONE HYDROCHLORIDE
  10. ACETAMINOPHEN. [Concomitant]
     Active Substance: ACETAMINOPHEN
  11. BRINZOLAMIDE [Concomitant]
     Active Substance: BRINZOLAMIDE

REACTIONS (2)
  - Lip swelling [None]
  - Swollen tongue [None]

NARRATIVE: CASE EVENT DATE: 20170723
